FAERS Safety Report 17664920 (Version 1)
Quarter: 2020Q2

REPORT INFORMATION
  Report Type: Spontaneous
  Country: US (occurrence: US)
  Receive Date: 20200414
  Receipt Date: 20200414
  Transmission Date: 20200713
  Serious: No
  Sender: FDA-Public Use
  Company Number: US-PFIZER INC-2020150711

PATIENT
  Age: 75 Year
  Sex: Female
  Weight: 76.66 kg

DRUGS (1)
  1. GLIPIZIDE. [Suspect]
     Active Substance: GLIPIZIDE
     Indication: DIABETES MELLITUS
     Dosage: UNK

REACTIONS (2)
  - Sleep disorder [Unknown]
  - Blood glucose decreased [Unknown]
